FAERS Safety Report 9129887 (Version 1)
Quarter: 2013Q1

REPORT INFORMATION
  Report Type: Spontaneous
  Country: US (occurrence: US)
  Receive Date: 20130228
  Receipt Date: 20130228
  Transmission Date: 20140127
  Serious: No
  Sender: FDA-Public Use
  Company Number: US-009507513-1302USA010703

PATIENT
  Sex: Female

DRUGS (10)
  1. JANUVIA [Suspect]
     Indication: DIABETES MELLITUS
     Dosage: 1 DF, QD
     Route: 048
  2. ZETIA [Concomitant]
     Route: 048
  3. COZAAR [Concomitant]
     Route: 048
  4. ARMOUR THYROID TABLETS [Concomitant]
  5. PROTONIX [Concomitant]
  6. ECOTRIN [Concomitant]
  7. MODURETIC [Concomitant]
  8. CORDARONE [Concomitant]
  9. PLAVIX [Concomitant]
  10. AMLODIPINE [Concomitant]

REACTIONS (4)
  - Gait disturbance [Not Recovered/Not Resolved]
  - Asthenia [Not Recovered/Not Resolved]
  - Product packaging quantity issue [Unknown]
  - Musculoskeletal disorder [Not Recovered/Not Resolved]
